FAERS Safety Report 19546522 (Version 2)
Quarter: 2022Q3

REPORT INFORMATION
  Report Type: Spontaneous
  Country: GB (occurrence: GB)
  Receive Date: 20210715
  Receipt Date: 20220912
  Transmission Date: 20221026
  Serious: Yes (Other)
  Sender: FDA-Public Use
  Company Number: GB-CELLTRION INC.-2021GB009369

PATIENT

DRUGS (2)
  1. INFLIXIMAB [Suspect]
     Active Substance: INFLIXIMAB
     Indication: Crohn^s disease
     Dosage: 120 MG, EVERY OTHER WEEK (EOW)/ FORTNIGHTLY
     Route: 058
  2. INFLIXIMAB [Suspect]
     Active Substance: INFLIXIMAB
     Indication: Product used for unknown indication
     Route: 042

REACTIONS (3)
  - Headache [Recovered/Resolved]
  - Headache [Unknown]
  - Therapy partial responder [Unknown]
